FAERS Safety Report 24761360 (Version 1)
Quarter: 2024Q4

REPORT INFORMATION
  Report Type: Spontaneous
  Country: JP (occurrence: JP)
  Receive Date: 20241220
  Receipt Date: 20241220
  Transmission Date: 20250114
  Serious: Yes (Death, Other)
  Sender: BRACCO
  Company Number: JP-BAYER-2024A012064

PATIENT
  Age: 64 Year
  Sex: Male

DRUGS (1)
  1. IOPAMIRON [Suspect]
     Active Substance: IOPAMIDOL
     Indication: Computerised tomogram kidney
     Dosage: 100 ML, ONCE
     Dates: start: 20230823, end: 20230823

REACTIONS (12)
  - Anaphylactic shock [Fatal]
  - Cardio-respiratory arrest [Fatal]
  - Depressed level of consciousness [Unknown]
  - Pulseless electrical activity [Unknown]
  - Ventricular fibrillation [Unknown]
  - Ventricular tachycardia [Unknown]
  - Kounis syndrome [Unknown]
  - Pruritus [Unknown]
  - Flushing [Unknown]
  - Blood pressure decreased [Unknown]
  - Erythema of eyelid [Unknown]
  - Foaming at mouth [Unknown]

NARRATIVE: CASE EVENT DATE: 20230823
